FAERS Safety Report 8126933-0 (Version None)
Quarter: 2012Q1

REPORT INFORMATION
  Report Type: 
  Country: None (occurrence: None)
  Receive Date: 20120210
  Receipt Date: 20120208
  Transmission Date: 20120608
  Serious: No
  Sender: FDA-Public Use
  Company Number: US-PFIZER INC-2012035684

PATIENT
  Sex: Female
  Weight: 55.329 kg

DRUGS (4)
  1. FLUTICASONE PROPIONATE [Concomitant]
     Indication: NASAL CONGESTION
     Dosage: TWO SPRAYS IN EACH NOSTRIL DAILY
     Route: 045
  2. SERTRALINE HYDROCHLORIDE [Suspect]
     Indication: ANXIETY
     Dosage: UNK
     Dates: start: 20080101
  3. SERTRALINE HYDROCHLORIDE [Suspect]
     Dosage: 25MG, DAILY AT NIGHT
     Dates: start: 20111101, end: 20111201
  4. SERTRALINE HYDROCHLORIDE [Suspect]
     Dosage: 100MG, DAILY IN THE MORNING
     Dates: start: 20111201

REACTIONS (2)
  - SEXUAL DYSFUNCTION [None]
  - INSOMNIA [None]
